FAERS Safety Report 15290659 (Version 1)
Quarter: 2018Q4

REPORT INFORMATION
  Report Type: Report from Study
  Country: ES (occurrence: ES)
  Receive Date: 20180817
  Receipt Date: 20180817
  Transmission Date: 20190204
  Serious: Yes (Hospitalization)
  Sender: FDA-Public Use
  Company Number: ES-TEVA-2018-ES-942989

PATIENT
  Age: 65 Year
  Sex: Female

DRUGS (2)
  1. CAPTOPRIL/HIDROCLOROTIAZIDA 50 MG/25 MG COMPRIMIDO [Suspect]
     Active Substance: CAPTOPRIL\HYDROCHLOROTHIAZIDE
     Indication: HYPERTENSION
     Dosage: 1 DOSAGE FORMS DAILY;
     Route: 048
     Dates: start: 2014, end: 20171208
  2. FUROSEMIDA 40 MG COMPRIMIDO [Suspect]
     Active Substance: FUROSEMIDE
     Indication: HYPERTENSION
     Dosage: .5 DOSAGE FORMS DAILY;
     Route: 048
     Dates: start: 2014, end: 20171208

REACTIONS (6)
  - Dizziness [Recovered/Resolved]
  - Fatigue [Recovered/Resolved]
  - Nausea [Recovered/Resolved]
  - Hypotension [Recovered/Resolved]
  - Vomiting [Recovered/Resolved]
  - Dyspnoea [Recovered/Resolved]

NARRATIVE: CASE EVENT DATE: 20171208
